FAERS Safety Report 6419289-2 (Version None)
Quarter: 2009Q4

REPORT INFORMATION
  Report Type: 
  Country: None (occurrence: None)
  Receive Date: 20091029
  Receipt Date: 20091027
  Transmission Date: 20100525
  Serious: Yes (Other)
  Sender: FDA-Public Use
  Company Number: BR-BRISTOL-MYERS SQUIBB COMPANY-14797146

PATIENT
  Sex: Female

DRUGS (15)
  1. BECENUN [Suspect]
     Indication: NON-HODGKIN'S LYMPHOMA
     Route: 042
     Dates: start: 20090923, end: 20090923
  2. BECENUN [Suspect]
     Indication: STEM CELL TRANSPLANT
     Route: 042
     Dates: start: 20090923, end: 20090923
  3. ACYCLOVIR [Concomitant]
  4. BACTRIM [Concomitant]
  5. FLUCONAZOLE [Concomitant]
  6. ALBENDAZOLE [Concomitant]
  7. OMEPRAZOLE [Concomitant]
  8. PLASIL [Concomitant]
  9. DRAMIN [Concomitant]
  10. ONDANSETRON [Concomitant]
  11. BENADRYL [Concomitant]
  12. FLEBOCORTID [Concomitant]
  13. ACETAMINOPHEN [Concomitant]
  14. CITALOPRAM HYDROBROMIDE [Concomitant]
  15. LEVONORGESTREL + ETHINYL ESTRADIOL [Concomitant]

REACTIONS (1)
  - GRAND MAL CONVULSION [None]
